FAERS Safety Report 12900760 (Version 5)
Quarter: 2018Q2

REPORT INFORMATION
  Report Type: Spontaneous
  Country: CA (occurrence: CA)
  Receive Date: 20161101
  Receipt Date: 20180402
  Transmission Date: 20180711
  Serious: Yes (Other)
  Sender: FDA-Public Use
  Company Number: CA-TEVA-679049ACC

PATIENT
  Age: 44 Year
  Sex: Female
  Weight: 63 kg

DRUGS (23)
  1. ENBREL [Suspect]
     Active Substance: ETANERCEPT
     Indication: RHEUMATOID ARTHRITIS
     Dosage: 7.1429 MILLIGRAM DAILY; STARTED IN DEC-2008
     Route: 058
     Dates: end: 201007
  2. APO-NAPROXEN [Suspect]
     Active Substance: NAPROXEN
     Indication: PRODUCT USED FOR UNKNOWN INDICATION
     Dosage: 500 MILLIGRAM DAILY; 250 MG, 2 TAB(S) ORALLY, TWO TIMES A DAY FOR 1 MONTH (S), (AS REQUIRED)
     Route: 048
  3. APO-PREDNISONE [Suspect]
     Active Substance: PREDNISONE
     Dosage: 15 MILLIGRAM DAILY; STARTED IN 2007
     Route: 065
  4. APO-RANITIDINE [Suspect]
     Active Substance: RANITIDINE
     Indication: PRODUCT USED FOR UNKNOWN INDICATION
     Dosage: 300 MILLIGRAM DAILY; 1 TAB(S), ORALLY TWO TIMES A DAY FOR 2 MONTH(S), STARTED IN 2012
     Route: 048
  5. RATIO-OXYCOCET [Suspect]
     Active Substance: ACETAMINOPHEN\OXYCODONE HYDROCHLORIDE
     Indication: PRODUCT USED FOR UNKNOWN INDICATION
     Route: 065
  6. METHOTREXATE. [Suspect]
     Active Substance: METHOTREXATE
     Indication: RHEUMATOID ARTHRITIS
     Route: 058
     Dates: start: 2008
  7. APO-AMITRIPTYLINE [Suspect]
     Active Substance: AMITRIPTYLINE HYDROCHLORIDE
     Indication: PRODUCT USED FOR UNKNOWN INDICATION
     Dosage: 75 MILLIGRAM DAILY; 1 TAB(S) ORALLY, TWO TIMES A DAY FOR 1 MONTH(S), (AS REQUIRED), STARTED IN 2011
     Route: 048
  8. APO-NAPROXEN [Suspect]
     Active Substance: NAPROXEN
     Dosage: 1000 MILLIGRAM DAILY; 500 MG, 1 TAB(S) ORALLY, TWO TIMES A DAY FOR 3 MONTH (S), (AS REQUIRED), START
     Route: 048
  9. DEPO-MEDROL [Suspect]
     Active Substance: METHYLPREDNISOLONE ACETATE
     Indication: RHEUMATOID ARTHRITIS
     Route: 014
  10. APO-ALENDRONATE [Suspect]
     Active Substance: ALENDRONATE SODIUM
     Indication: PRODUCT USED FOR UNKNOWN INDICATION
     Route: 065
  11. SEPTRA [Suspect]
     Active Substance: SULFAMETHOXAZOLE\TRIMETHOPRIM
     Route: 065
  12. APO - MELOXICAM [Suspect]
     Active Substance: MELOXICAM
     Indication: PRODUCT USED FOR UNKNOWN INDICATION
     Dosage: 150 MILLIGRAM DAILY;
     Route: 065
  13. APO-NAPROXEN [Suspect]
     Active Substance: NAPROXEN
     Dosage: 500 MILLIGRAM DAILY; 500 MG, 1 TAB(S) ORALLY, TWO TIMES A DAY FOR 1 MONTH (S), (AS REQUIRED), STARTE
     Route: 048
  14. XELJANZ [Suspect]
     Active Substance: TOFACITINIB CITRATE
     Indication: RHEUMATOID ARTHRITIS
     Dosage: 10 MILLIGRAM DAILY;
     Route: 048
     Dates: start: 20140927
  15. SULFASALAZINE. [Suspect]
     Active Substance: SULFASALAZINE
     Indication: RHEUMATOID ARTHRITIS
     Dosage: 1 GRAM DAILY;
     Route: 048
     Dates: start: 20071221, end: 20080211
  16. PANTOLOC [Suspect]
     Active Substance: PANTOPRAZOLE SODIUM
     Route: 065
  17. VIMOVO [Suspect]
     Active Substance: ESOMEPRAZOLE MAGNESIUM\NAPROXEN
     Route: 065
  18. METHOTREXATE. [Suspect]
     Active Substance: METHOTREXATE
     Indication: RHEUMATOID ARTHRITIS
     Route: 048
     Dates: start: 2007, end: 2008
  19. LYRICA [Suspect]
     Active Substance: PREGABALIN
     Indication: RHEUMATOID ARTHRITIS
     Dosage: 300 MILLIGRAM DAILY;
     Route: 048
  20. HUMIRA [Suspect]
     Active Substance: ADALIMUMAB
     Indication: DRUG THERAPY
     Dosage: STARTED IN AUG-2010
     Route: 058
     Dates: end: 201312
  21. IMURAN [Suspect]
     Active Substance: AZATHIOPRINE
     Route: 065
  22. FOLIC ACID. [Concomitant]
     Active Substance: FOLIC ACID
  23. PLAQUENIL [Concomitant]
     Active Substance: HYDROXYCHLOROQUINE SULFATE

REACTIONS (52)
  - Rheumatoid arthritis [Unknown]
  - Conjunctivitis [Unknown]
  - Dry mouth [Unknown]
  - Musculoskeletal pain [Unknown]
  - Pain [Unknown]
  - Infection [Unknown]
  - Bursitis [Unknown]
  - Condition aggravated [Unknown]
  - Ocular hyperaemia [Unknown]
  - Cushingoid [Unknown]
  - Thrombosis [Unknown]
  - Pruritus [Unknown]
  - Erythema [Unknown]
  - Pain in extremity [Unknown]
  - Eye irritation [Unknown]
  - Dry eye [Unknown]
  - Lung disorder [Unknown]
  - Feeling jittery [Unknown]
  - Swelling face [Unknown]
  - Joint swelling [Unknown]
  - Rash [Unknown]
  - Tenosynovitis stenosans [Unknown]
  - Fibromyalgia [Unknown]
  - Dyspnoea [Unknown]
  - Nausea [Unknown]
  - Malaise [Unknown]
  - Interstitial lung disease [Unknown]
  - Neoplasm malignant [Unknown]
  - Musculoskeletal stiffness [Unknown]
  - Impaired work ability [Unknown]
  - Ulcer [Unknown]
  - Eye pain [Unknown]
  - Arthralgia [Unknown]
  - Drug effect decreased [Unknown]
  - Nodule [Unknown]
  - Tenderness [Unknown]
  - Joint effusion [Unknown]
  - Photophobia [Unknown]
  - Synovial cyst [Unknown]
  - Abdominal pain [Unknown]
  - Flank pain [Unknown]
  - Synovial fluid analysis [Unknown]
  - Visual impairment [Unknown]
  - Rheumatoid nodule [Unknown]
  - Scleritis [Unknown]
  - Pneumonia [Unknown]
  - Peripheral swelling [Unknown]
  - Antinuclear antibody positive [Unknown]
  - Atelectasis [Unknown]
  - Crepitations [Unknown]
  - Wheezing [Unknown]
  - Pleuritic pain [Unknown]

NARRATIVE: CASE EVENT DATE: 2008
